FAERS Safety Report 14067397 (Version 1)
Quarter: 2017Q4

REPORT INFORMATION
  Report Type: Spontaneous
  Country: US (occurrence: US)
  Receive Date: 20171008
  Receipt Date: 20171008
  Transmission Date: 20180321
  Serious: Yes (Hospitalization)
  Sender: FDA-Public Use
  Company Number: None

PATIENT
  Age: 49 Year
  Sex: Female
  Weight: 66.15 kg

DRUGS (7)
  1. CALCIUM [Concomitant]
     Active Substance: CALCIUM
  2. FISH OIL [Concomitant]
     Active Substance: FISH OIL
  3. BIOTIN [Concomitant]
     Active Substance: BIOTIN
  4. MULTI B VITAMIN [Concomitant]
  5. ASPIRIN. [Concomitant]
     Active Substance: ASPIRIN
  6. GLUCOSAMINE/CONDROITIN [Concomitant]
  7. CIPROFLOXACIN. [Suspect]
     Active Substance: CIPROFLOXACIN
     Route: 048

REACTIONS (8)
  - Anxiety [None]
  - Dyspnoea [None]
  - Arthropathy [None]
  - Pain in extremity [None]
  - Contusion [None]
  - Muscular weakness [None]
  - Dysstasia [None]
  - Tendon disorder [None]

NARRATIVE: CASE EVENT DATE: 20170601
